FAERS Safety Report 5598176-6 (Version None)
Quarter: 2008Q1

REPORT INFORMATION
  Report Type: 
  Country: None (occurrence: None)
  Receive Date: 20080122
  Receipt Date: 20080117
  Transmission Date: 20080703
  Serious: Yes (Other)
  Sender: FDA-Public Use
  Company Number: PHRM2008FR00646

PATIENT
  Age: 83 Year
  Sex: Female

DRUGS (5)
  1. STALEVO 100 [Suspect]
     Indication: PARKINSON'S DISEASE
     Dosage: 600/350/87.5 MG/DAY
     Route: 048
     Dates: start: 20070801
  2. MODOPAR [Concomitant]
     Indication: PARKINSON'S DISEASE
     Dosage: 100/25 MG/DAY
     Route: 048
  3. INDAPAMIDE [Concomitant]
  4. COZAAR [Concomitant]
  5. IKOREL [Concomitant]

REACTIONS (2)
  - OEDEMA PERIPHERAL [None]
  - VENOUS THROMBOSIS [None]
